FAERS Safety Report 15920414 (Version 1)
Quarter: 2019Q1

REPORT INFORMATION
  Report Type: Spontaneous
  Country: US (occurrence: US)
  Receive Date: 20190205
  Receipt Date: 20190205
  Transmission Date: 20190417
  Serious: Yes (Hospitalization)
  Sender: FDA-Public Use
  Company Number: PHEH2019US004889

PATIENT

DRUGS (2)
  1. IBRANCE [Suspect]
     Active Substance: PALBOCICLIB
     Indication: BREAST CANCER
     Dosage: 100 MG, QD (FOR 3 WEEKS AND THEN 1 WEEK OFF)
     Route: 065
     Dates: start: 201601
  2. LETROZOLE. [Suspect]
     Active Substance: LETROZOLE
     Indication: BREAST CANCER
     Dosage: 2.5 MG, QD
     Route: 065
     Dates: start: 201601

REACTIONS (6)
  - Ear infection [Unknown]
  - Eye discharge [Unknown]
  - Ocular hyperaemia [Unknown]
  - Weight decreased [Unknown]
  - White blood cell count decreased [Unknown]
  - Sinusitis [Unknown]
